FAERS Safety Report 7300550-4 (Version None)
Quarter: 2011Q1

REPORT INFORMATION
  Report Type: 
  Country: None (occurrence: None)
  Receive Date: 20110218
  Receipt Date: 20110204
  Transmission Date: 20110831
  Serious: No
  Sender: FDA-Public Use
  Company Number: US-BIOGENIDEC-2010BI022594

PATIENT
  Sex: Female

DRUGS (2)
  1. TYSABRI [Suspect]
     Indication: MULTIPLE SCLEROSIS
     Route: 042
     Dates: start: 20080910
  2. DEPRESSION MEDICATION [Concomitant]

REACTIONS (8)
  - UNRESPONSIVE TO STIMULI [None]
  - FATIGUE [None]
  - MENTAL IMPAIRMENT [None]
  - DISSOCIATION [None]
  - STRESS [None]
  - BURNING SENSATION [None]
  - MUSCULOSKELETAL STIFFNESS [None]
  - HYPOAESTHESIA [None]
